FAERS Safety Report 4413035-X (Version None)
Quarter: 2004Q3

REPORT INFORMATION
  Report Type: 
  Country: None (occurrence: None)
  Receive Date: 20040802
  Receipt Date: 20040723
  Transmission Date: 20050211
  Serious: Yes (Hospitalization)
  Sender: FDA-Public Use
  Company Number: PHBS2004JP09727

PATIENT
  Age: 61 Year
  Sex: Female

DRUGS (3)
  1. FASTIC #AJ [Suspect]
     Indication: DIABETES MELLITUS
     Dosage: 270 MG/DAY
     Route: 048
     Dates: start: 20040518, end: 20040626
  2. BUFORMIN HYDROCHLORIDE [Concomitant]
     Indication: DIABETES MELLITUS
     Dosage: 300 MG, UNK
     Dates: start: 20020607, end: 20040626
  3. DEPAS [Concomitant]
     Dosage: .5 MG, UNK
     Dates: start: 20011221, end: 20040626

REACTIONS (4)
  - ABDOMINAL DISTENSION [None]
  - ABDOMINAL PAIN LOWER [None]
  - DRUG HYPERSENSITIVITY [None]
  - EOSINOPHIL COUNT INCREASED [None]
